FAERS Safety Report 6974999-3 (Version None)
Quarter: 2010Q3

REPORT INFORMATION
  Report Type: 
  Country: None (occurrence: None)
  Receive Date: 20100910
  Receipt Date: 20090113
  Transmission Date: 20110219
  Serious: No
  Sender: FDA-Public Use
  Company Number: US-WYE-H07668309

PATIENT
  Sex: Female

DRUGS (6)
  1. PRISTIQ [Suspect]
     Indication: MAJOR DEPRESSION
     Route: 048
     Dates: start: 20080626, end: 20081015
  2. XANAX [Concomitant]
  3. ALPRAZOLAM [Concomitant]
  4. CHANTIX [Concomitant]
  5. EFFEXOR XR [Concomitant]
     Dosage: ^TAPERING OFF^
     Dates: start: 20080101, end: 20081002
  6. COUMADIN [Concomitant]

REACTIONS (1)
  - HAEMORRHAGE [None]
